FAERS Safety Report 8808620 (Version 1)
Quarter: 2012Q4

REPORT INFORMATION
  Report Type: 
  Country: US (occurrence: US)
  Receive Date: 20120926
  Receipt Date: 20120926
  Transmission Date: 20130627
  Serious: No
  Sender: FDA-Public Use
  Company Number: US-BAYER-2012-099891

PATIENT
  Sex: Female

DRUGS (2)
  1. MIRENA [Suspect]
     Indication: CONTRACEPTION
     Dosage: UNK
     Dates: start: 20110915
  2. NAPROXEN SODIUM ({= 220 MG) [Concomitant]

REACTIONS (3)
  - Abdominal discomfort [None]
  - Pyrexia [None]
  - Muscle spasms [None]
